FAERS Safety Report 5332794-5 (Version None)
Quarter: 2007Q2

REPORT INFORMATION
  Report Type: 
  Country: None (occurrence: None)
  Receive Date: 20070523
  Receipt Date: 20070511
  Transmission Date: 20071010
  Serious: Yes (Other)
  Sender: FDA-Public Use
  Company Number: CA-PFIZER INC-2007039629

PATIENT
  Sex: Male
  Weight: 113.63 kg

DRUGS (6)
  1. DILANTIN [Suspect]
     Dosage: TEXT:TOTAL DAILY DOSE:550-600MG
     Route: 048
  2. WARFARIN SODIUM [Concomitant]
  3. CRESTOR [Concomitant]
  4. CYANOCOBALAMIN [Concomitant]
  5. TYLENOL [Concomitant]
  6. GUAIFENESIN [Concomitant]

REACTIONS (4)
  - ANTICONVULSANT DRUG LEVEL ABNORMAL [None]
  - CONVULSION [None]
  - GINGIVAL DISORDER [None]
  - MEMORY IMPAIRMENT [None]
